FAERS Safety Report 10897949 (Version 1)
Quarter: 2015Q1

REPORT INFORMATION
  Report Type: Spontaneous
  Country: US (occurrence: None)
  Receive Date: 20150302
  Receipt Date: 20150302
  Transmission Date: 20150721
  Serious: Yes (Life-Threatening, Hospitalization, Disabling)
  Sender: FDA-Public Use
  Company Number: None

PATIENT
  Age: 78 Year
  Sex: Female
  Weight: 74.84 kg

DRUGS (16)
  1. LOSARTAN [Concomitant]
     Active Substance: LOSARTAN
  2. ACETYL-L-CARNITINE [Concomitant]
  3. VITAMIN C [Concomitant]
     Active Substance: ASCORBIC ACID
  4. FLUORESCEIN SODIUM. [Suspect]
     Active Substance: FLUORESCEIN SODIUM
     Indication: ANGIOGRAM
     Dosage: LESS THAN 1 MINUTE??UNKNOWN TO ME , ONCE, INTO A VEIN
  5. OMEGA 3 FISH OIL [Concomitant]
     Active Substance: FISH OIL\OMEGA-3 FATTY ACIDS
  6. VITAMIN D3 [Concomitant]
     Active Substance: CHOLECALCIFEROL
  7. ATENOLOL. [Concomitant]
     Active Substance: ATENOLOL
  8. OCUVITE [Concomitant]
     Active Substance: VITAMINS
  9. PREMARIN [Concomitant]
     Active Substance: ESTROGENS, CONJUGATED
  10. VENLAFAXINE ER [Concomitant]
     Active Substance: VENLAFAXINE HYDROCHLORIDE
  11. AZOPT [Concomitant]
     Active Substance: BRINZOLAMIDE
  12. COENZYME Q10 [Concomitant]
     Active Substance: UBIDECARENONE
  13. PROBIOTICS [Concomitant]
     Active Substance: PROBIOTICS NOS
  14. ASPIRIN. [Concomitant]
     Active Substance: ASPIRIN
  15. FLUORESCEIN SODIUM. [Suspect]
     Active Substance: FLUORESCEIN SODIUM
     Dosage: LESS THAN 1 MINUTE??UNKNOWN TO ME , ONCE, INTO A VEIN
  16. AMLODIPINE [Concomitant]
     Active Substance: AMLODIPINE BESYLATE

REACTIONS (9)
  - Syncope [None]
  - Electrocardiogram abnormal [None]
  - Confusional state [None]
  - Anaphylactic reaction [None]
  - Contrast media reaction [None]
  - Speech disorder [None]
  - Urinary incontinence [None]
  - Chest discomfort [None]
  - Chest pain [None]

NARRATIVE: CASE EVENT DATE: 20141022
